FAERS Safety Report 16166189 (Version 1)
Quarter: 2019Q2

REPORT INFORMATION
  Report Type: Spontaneous
  Country: AT (occurrence: AT)
  Receive Date: 20190406
  Receipt Date: 20190406
  Transmission Date: 20190711
  Serious: Yes (Other)
  Sender: FDA-Public Use
  Company Number: AT-ACCORD-119162

PATIENT
  Age: 57 Year
  Sex: Female

DRUGS (1)
  1. IBANDRONATE SODIUM. [Suspect]
     Active Substance: IBANDRONATE SODIUM
     Indication: OSTEOPOROSIS
     Dosage: 3MG EVERY 3 MONTHS

REACTIONS (3)
  - Exposed bone in jaw [Recovered/Resolved]
  - Inflammation [Recovered/Resolved]
  - Osteonecrosis of jaw [Recovered/Resolved]
